FAERS Safety Report 15493797 (Version 3)
Quarter: 2018Q4

REPORT INFORMATION
  Report Type: Spontaneous
  Country: HU (occurrence: HU)
  Receive Date: 20181012
  Receipt Date: 20181029
  Transmission Date: 20190205
  Serious: Yes (Hospitalization)
  Sender: FDA-Public Use
  Company Number: HU-TEVA-2018-HU-962069

PATIENT
  Sex: Male

DRUGS (4)
  1. METHYLPREDNISOLONE. [Suspect]
     Active Substance: METHYLPREDNISOLONE
     Indication: DERMATITIS EXFOLIATIVE GENERALISED
  2. SIROLIMUS. [Suspect]
     Active Substance: SIROLIMUS
     Indication: PYREXIA
     Route: 065
     Dates: start: 20161128
  3. SIROLIMUS. [Suspect]
     Active Substance: SIROLIMUS
     Indication: DERMATITIS EXFOLIATIVE GENERALISED
  4. METHYLPREDNISOLONE. [Suspect]
     Active Substance: METHYLPREDNISOLONE
     Indication: PYREXIA
     Route: 051
     Dates: start: 20161116

REACTIONS (6)
  - Viral infection [Recovered/Resolved]
  - Haematochezia [Recovered/Resolved]
  - Necrotising fasciitis [Recovered/Resolved]
  - Pyrexia [Recovered/Resolved]
  - Vomiting [Recovered/Resolved]
  - Cellulitis [Recovered/Resolved]
